FAERS Safety Report 7166545-9 (Version None)
Quarter: 2010Q4

REPORT INFORMATION
  Report Type: 
  Country: None (occurrence: None)
  Receive Date: 20101202
  Receipt Date: 20101126
  Transmission Date: 20110411
  Serious: Yes (Death)
  Sender: FDA-Public Use
  Company Number: 2010JP006714

PATIENT
  Age: 64 Year
  Sex: Male
  Weight: 74 kg

DRUGS (16)
  1. TACROLIMUS [Suspect]
     Indication: COLITIS ULCERATIVE
     Dosage: 3 MG, BID, ORAL; 2.5 MG, BID, ORAL; 2 MG, BID, ORAL; ORAL; 1 MG, BID, ORAL; 0.5 MG, BID, ORAL
     Route: 048
     Dates: start: 20100902, end: 20100915
  2. TACROLIMUS [Suspect]
     Indication: COLITIS ULCERATIVE
     Dosage: 3 MG, BID, ORAL; 2.5 MG, BID, ORAL; 2 MG, BID, ORAL; ORAL; 1 MG, BID, ORAL; 0.5 MG, BID, ORAL
     Route: 048
     Dates: start: 20100916, end: 20100920
  3. TACROLIMUS [Suspect]
     Indication: COLITIS ULCERATIVE
     Dosage: 3 MG, BID, ORAL; 2.5 MG, BID, ORAL; 2 MG, BID, ORAL; ORAL; 1 MG, BID, ORAL; 0.5 MG, BID, ORAL
     Route: 048
     Dates: start: 20100921, end: 20100925
  4. TACROLIMUS [Suspect]
     Indication: COLITIS ULCERATIVE
     Dosage: 3 MG, BID, ORAL; 2.5 MG, BID, ORAL; 2 MG, BID, ORAL; ORAL; 1 MG, BID, ORAL; 0.5 MG, BID, ORAL
     Route: 048
     Dates: start: 20100926, end: 20100930
  5. TACROLIMUS [Suspect]
     Indication: COLITIS ULCERATIVE
     Dosage: 3 MG, BID, ORAL; 2.5 MG, BID, ORAL; 2 MG, BID, ORAL; ORAL; 1 MG, BID, ORAL; 0.5 MG, BID, ORAL
     Route: 048
     Dates: start: 20101001, end: 20101012
  6. TACROLIMUS [Suspect]
     Indication: COLITIS ULCERATIVE
     Dosage: 3 MG, BID, ORAL; 2.5 MG, BID, ORAL; 2 MG, BID, ORAL; ORAL; 1 MG, BID, ORAL; 0.5 MG, BID, ORAL
     Route: 048
     Dates: start: 20101013, end: 20101018
  7. REMICADE [Suspect]
     Indication: COLITIS ULCERATIVE
     Dosage: 300 MG, IV NOS
     Route: 042
     Dates: start: 20100927, end: 20100927
  8. REMICADE [Suspect]
     Indication: COLITIS ULCERATIVE
     Dosage: 300 MG, IV NOS
     Route: 042
     Dates: start: 20101012, end: 20101012
  9. PREDNISOLONE [Suspect]
     Indication: COLITIS ULCERATIVE
     Dosage: 40 MG,; 60 MG,; 50 MG,; 30 MG,; 20 MG,
     Dates: start: 20100830, end: 20100904
  10. PREDNISOLONE [Suspect]
     Indication: COLITIS ULCERATIVE
     Dosage: 40 MG,; 60 MG,; 50 MG,; 30 MG,; 20 MG,
     Dates: start: 20100905, end: 20100918
  11. PREDNISOLONE [Suspect]
     Indication: COLITIS ULCERATIVE
     Dosage: 40 MG,; 60 MG,; 50 MG,; 30 MG,; 20 MG,
     Dates: start: 20100919, end: 20101002
  12. PREDNISOLONE [Suspect]
     Indication: COLITIS ULCERATIVE
     Dosage: 40 MG,; 60 MG,; 50 MG,; 30 MG,; 20 MG,
     Dates: start: 20101003, end: 20101016
  13. PREDNISOLONE [Suspect]
     Indication: COLITIS ULCERATIVE
     Dosage: 40 MG,; 60 MG,; 50 MG,; 30 MG,; 20 MG,
     Dates: start: 20101017, end: 20101023
  14. PREDNISOLONE [Suspect]
     Indication: COLITIS ULCERATIVE
     Dosage: 40 MG,; 60 MG,; 50 MG,; 30 MG,; 20 MG,
     Dates: start: 20101024, end: 20101029
  15. PENTASA (MESALAZINE) PER ORAL NOS [Concomitant]
  16. TAKEPRON (LANSOPRAZOLE) PER ORAL NOS [Concomitant]

REACTIONS (3)
  - DRUG LEVEL INCREASED [None]
  - NO THERAPEUTIC RESPONSE [None]
  - PNEUMONIA [None]
